FAERS Safety Report 8447200 (Version 2)
Quarter: 2012Q4

REPORT INFORMATION
  Report Type: 
  Country: JP (occurrence: JP)
  Receive Date: 20120308
  Receipt Date: 20121112
  Transmission Date: 20130627
  Serious: Yes (Death, Other)
  Sender: FDA-Public Use
  Company Number: JP-ASTELLAS-2012JP001768

PATIENT
  Age: 22 Year
  Sex: Male

DRUGS (15)
  1. PROGRAF [Suspect]
     Indication: PROPHYLAXIS AGAINST GRAFT VERSUS HOST DISEASE
     Route: 065
  2. PROGRAF [Suspect]
     Route: 065
  3. PROGRAF [Suspect]
     Indication: PROPHYLAXIS AGAINST GRAFT VERSUS HOST DISEASE
     Dosage: 0.02 mg/kg, Continuous
     Route: 041
  4. FLUDARABINE [Concomitant]
     Indication: PREMEDICATION
     Dosage: 25 mg/m2, Unknown/D
     Route: 065
  5. FLUDARABINE [Concomitant]
     Dosage: 25 mg/m2, Unknown/D
     Route: 065
  6. MELPHALAN [Concomitant]
     Indication: PREMEDICATION
     Dosage: 40 mg/m2, Unknown/D
     Route: 065
  7. MELPHALAN [Concomitant]
     Dosage: 90 mg/m2, Unknown/D
     Route: 065
  8. METHOTREXATE [Concomitant]
     Indication: PROPHYLAXIS AGAINST GRAFT VERSUS HOST DISEASE
     Route: 065
  9. HEPARIN [Concomitant]
     Indication: PROPHYLAXIS
     Route: 065
  10. URSODEOXYCHOLIC ACID [Concomitant]
     Indication: PROPHYLAXIS
     Route: 065
  11. PREDNISOLONE [Concomitant]
     Indication: VENOUS OCCLUSION
     Dosage: 1.4 mg/kg, Unknown/D
     Route: 065
  12. SOLUTIONS FOR PARENTERAL NUTRITION [Concomitant]
     Indication: VENOUS OCCLUSION
     Route: 065
  13. DIURETICS [Concomitant]
     Indication: VENOUS OCCLUSION
     Route: 065
  14. DOPAMINE HYDROCHLORIDE [Concomitant]
     Indication: VENOUS OCCLUSION
     Route: 065
  15. ALBUMIN [Concomitant]
     Indication: VENOUS OCCLUSION
     Route: 065

REACTIONS (6)
  - Drug ineffective [Unknown]
  - Acute graft versus host disease in skin [Unknown]
  - Chronic graft versus host disease in skin [Unknown]
  - Toxoplasmosis [Fatal]
  - Epstein-Barr virus test positive [Unknown]
  - Cytomegalovirus test positive [Unknown]
